FAERS Safety Report 7768518-1 (Version None)
Quarter: 2011Q3

REPORT INFORMATION
  Report Type: 
  Country: None (occurrence: None)
  Receive Date: 20110922
  Receipt Date: 20110228
  Transmission Date: 20111222
  Serious: No
  Sender: FDA-Public Use
  Company Number: US-ASTRAZENECA-2011SE10915

PATIENT
  Age: 49 Year
  Sex: Female
  Weight: 72.6 kg

DRUGS (5)
  1. PROTONIX [Concomitant]
  2. SOMA [Concomitant]
  3. SEROQUEL XR [Suspect]
     Indication: BIPOLAR DISORDER
     Route: 048
     Dates: start: 20100101, end: 20110221
  4. SEROQUEL XR [Suspect]
     Route: 048
  5. XANAX [Concomitant]

REACTIONS (5)
  - APHAGIA [None]
  - DRUG DOSE OMISSION [None]
  - CRYING [None]
  - DEPRESSION [None]
  - FEELINGS OF WORTHLESSNESS [None]
